FAERS Safety Report 7694313-8 (Version None)
Quarter: 2011Q3

REPORT INFORMATION
  Report Type: 
  Country: None (occurrence: None)
  Receive Date: 20110819
  Receipt Date: 20110812
  Transmission Date: 20111222
  Serious: Yes (Other)
  Sender: FDA-Public Use
  Company Number: AU-B.I. PHARMACEUTICALS,INC./RIDGEFIELD-2011-AU-00460AU

PATIENT
  Age: 83 Year
  Sex: Female

DRUGS (1)
  1. PRADAXA [Suspect]
     Dosage: 220 MG
     Dates: start: 20110620, end: 20110624

REACTIONS (6)
  - CONFUSIONAL STATE [None]
  - CARDIAC FAILURE [None]
  - DIZZINESS [None]
  - TREMOR [None]
  - HEADACHE [None]
  - BLOOD PRESSURE INCREASED [None]
